FAERS Safety Report 9658880 (Version 2)
Quarter: 2013Q4

REPORT INFORMATION
  Report Type: Spontaneous
  Country: US (occurrence: US)
  Receive Date: 20131030
  Receipt Date: 20131212
  Transmission Date: 20140711
  Serious: No
  Sender: FDA-Public Use
  Company Number: US-009507513-1310USA014336

PATIENT
  Age: 74 Year
  Sex: Female
  Weight: 80.73 kg

DRUGS (6)
  1. MIRALAX [Suspect]
     Indication: SURGERY
     Dosage: 17 G, HS
     Route: 048
     Dates: start: 20130709, end: 20131019
  2. CENTRUM SILVER [Concomitant]
     Indication: PRODUCT USED FOR UNKNOWN INDICATION
     Dosage: UNK, UNKNOWN
  3. LASIX (FUROSEMIDE SODIUM) [Concomitant]
     Indication: JOINT SWELLING
     Dosage: UNK, UNKNOWN
  4. FOSAMAX [Concomitant]
     Indication: OSTEOPOROSIS
     Dosage: UNK, UNKNOWN
  5. CLONAZEPAM [Concomitant]
     Indication: SLEEP DISORDER THERAPY
     Dosage: UNK, UNKNOWN
  6. ALEVE [Concomitant]
     Indication: PROCEDURAL PAIN
     Dosage: UNK, UNKNOWN

REACTIONS (5)
  - Vomiting [Recovered/Resolved]
  - Malaise [Unknown]
  - Incorrect drug administration duration [Unknown]
  - Product odour abnormal [Unknown]
  - Product taste abnormal [Unknown]
